FAERS Safety Report 5014568-8 (Version None)
Quarter: 2006Q2

REPORT INFORMATION
  Report Type: 
  Country: None (occurrence: None)
  Receive Date: 20060525
  Receipt Date: 20060512
  Transmission Date: 20061013
  Serious: Yes (Other)
  Sender: FDA-Public Use
  Company Number: 2006030404

PATIENT
  Age: 56 Year
  Sex: Female

DRUGS (8)
  1. BEXTRA [Suspect]
     Indication: OSTEOARTHRITIS
     Dosage: 10 MG (10 MG, 1 IN 1 D), ORAL
     Route: 048
     Dates: start: 20020327, end: 20021226
  2. LABETALOL [Concomitant]
  3. ZOCOR [Concomitant]
  4. VALTREX [Concomitant]
  5. ACIPHEX [Concomitant]
  6. ESTROPIPATE [Concomitant]
  7. AMITRIPTYLINE HCL [Concomitant]
  8. DIOVAN HCT [Concomitant]

REACTIONS (3)
  - DERMATITIS [None]
  - DRUG HYPERSENSITIVITY [None]
  - STEVENS-JOHNSON SYNDROME [None]
